FAERS Safety Report 4583587-8 (Version None)
Quarter: 2005Q1

REPORT INFORMATION
  Report Type: 
  Country: None (occurrence: None)
  Receive Date: 20050125
  Receipt Date: 20041109
  Transmission Date: 20050727
  Serious: No
  Sender: FDA-Public Use
  Company Number: USA041080807

PATIENT
  Age: 86 Year
  Sex: Female

DRUGS (6)
  1. FORTEO [Suspect]
     Indication: OSTEOPOROSIS
     Dates: start: 20040701
  2. TOPROL-XL [Concomitant]
  3. PREVACID [Concomitant]
  4. VIACTIV [Concomitant]
  5. ULTRACET [Concomitant]
  6. PATANOL [Concomitant]

REACTIONS (8)
  - ABNORMAL SENSATION IN EYE [None]
  - BALANCE DISORDER [None]
  - DIZZINESS [None]
  - DYSURIA [None]
  - EYE DISORDER [None]
  - INJECTION SITE ERYTHEMA [None]
  - SOMNOLENCE [None]
  - VISUAL ACUITY REDUCED [None]
